FAERS Safety Report 8470639-5 (Version None)
Quarter: 2012Q2

REPORT INFORMATION
  Report Type: 
  Country: None (occurrence: None)
  Receive Date: 20120323
  Receipt Date: 20110812
  Transmission Date: 20120825
  Serious: Yes (Hospitalization)
  Sender: FDA-Public Use
  Company Number: 163-21880-11081707

PATIENT
  Age: 87 Year
  Sex: Male

DRUGS (9)
  1. OXYCODONE HCL [Concomitant]
  2. CLONAZEPAM [Concomitant]
  3. TAMSULOSIN HCL (TAMSULOSIN HYDROCHLORIDE) [Concomitant]
  4. MAGNESIUM OXIDE [Concomitant]
  5. FUROSEMIDE [Concomitant]
  6. DEXAMETHASONE SODIUM PHOSPHATE [Concomitant]
  7. MULTI-DAY (VITAMINS WITH MINERALS) [Concomitant]
  8. LENALIDOMIDE [Suspect]
     Indication: MULTIPLE MYELOMA
     Dosage: 10 MG, DAILY X 21 DAYS, PO
     Route: 048
     Dates: start: 20110715, end: 20110101
  9. POTASSIUM BICARBONATE [Concomitant]

REACTIONS (1)
  - PNEUMONIA [None]
